FAERS Safety Report 7546542-1 (Version None)
Quarter: 2011Q2

REPORT INFORMATION
  Report Type: 
  Country: None (occurrence: None)
  Receive Date: 20110614
  Receipt Date: 20110526
  Transmission Date: 20111010
  Serious: Yes (Hospitalization, Other)
  Sender: FDA-Public Use
  Company Number: US-BAYER-201038300NA

PATIENT
  Age: 28 Year
  Sex: Female

DRUGS (12)
  1. AMFETAMINE [Concomitant]
     Dosage: UNK
     Dates: start: 20020101, end: 20060101
  2. YASMIN [Suspect]
     Indication: ACNE
     Route: 048
  3. IRON SULFATETHIAMIN COMPOUND TAB [Concomitant]
  4. DEPO-PROVERA [Concomitant]
     Dosage: UNK
     Dates: start: 20060601
  5. PCP [Concomitant]
     Dosage: UNK
     Dates: start: 20020101, end: 20060101
  6. VITAMIN TAB [Concomitant]
  7. COCAINE [Concomitant]
     Dosage: UNK
     Dates: start: 20020101, end: 20060101
  8. COCAINE [Concomitant]
     Dosage: UNK
     Dates: start: 20020101, end: 20060101
  9. ALBUTEROL INHALER [Concomitant]
     Indication: ASTHMA
     Dosage: UNK UNK, PRN
     Route: 055
  10. YAZ [Suspect]
     Indication: ACNE
     Route: 048
  11. CLONIDINE [Concomitant]
  12. MARIJUANA [Concomitant]
     Dosage: UNK
     Dates: start: 20020101, end: 20060101

REACTIONS (2)
  - MYOCARDIAL INFARCTION [None]
  - CEREBROVASCULAR ACCIDENT [None]
